FAERS Safety Report 11890988 (Version 2)
Quarter: 2016Q1

REPORT INFORMATION
  Report Type: Not Available
  Country: GB (occurrence: GB)
  Receive Date: 20160106
  Receipt Date: 20160223
  Transmission Date: 20160526
  Serious: Yes (Disabling)
  Sender: FDA-Public Use
  Company Number: GB-BEH-2016057537

PATIENT
  Age: 79 Year
  Sex: Male
  Weight: 69.7 kg

DRUGS (1)
  1. PRIVIGEN [Suspect]
     Active Substance: HUMAN IMMUNOGLOBULIN G
     Indication: NEUROPATHY PERIPHERAL
     Route: 042
     Dates: start: 20151125, end: 20151125

REACTIONS (5)
  - Dermatitis allergic [Not Recovered/Not Resolved]
  - Pruritus [Unknown]
  - Dermatitis bullous [Not Recovered/Not Resolved]
  - Burning sensation [Unknown]
  - Insomnia [Unknown]

NARRATIVE: CASE EVENT DATE: 20151127
